FAERS Safety Report 4266853-5 (Version None)
Quarter: 2004Q1

REPORT INFORMATION
  Report Type: 
  Country: None (occurrence: None)
  Receive Date: 20040108
  Receipt Date: 20031225
  Transmission Date: 20041129
  Serious: Yes (Hospitalization, Other)
  Sender: FDA-Public Use
  Company Number: WAES 0312USA02536

PATIENT
  Sex: Male

DRUGS (2)
  1. PEPCID RPD [Suspect]
     Route: 048
  2. COZAAR [Suspect]

REACTIONS (1)
  - DISSEMINATED INTRAVASCULAR COAGULATION [None]
